FAERS Safety Report 13550733 (Version 1)
Quarter: 2017Q2

REPORT INFORMATION
  Report Type: Spontaneous
  Country: US (occurrence: US)
  Receive Date: 20170516
  Receipt Date: 20170516
  Transmission Date: 20170830
  Serious: Yes (Other)
  Sender: FDA-Public Use
  Company Number: US-SA-2017SA087703

PATIENT
  Age: 38 Year
  Sex: Male

DRUGS (1)
  1. DUPIXENT [Suspect]
     Active Substance: DUPILUMAB
     Dosage: DOSE: 300MG TWICE
     Route: 058
     Dates: start: 20170506

REACTIONS (2)
  - Loss of consciousness [Unknown]
  - Phobia [Unknown]

NARRATIVE: CASE EVENT DATE: 20170506
